FAERS Safety Report 21755311 (Version 1)
Quarter: 2022Q4

REPORT INFORMATION
  Report Type: Spontaneous
  Country: US (occurrence: None)
  Receive Date: 20221220
  Receipt Date: 20221220
  Transmission Date: 20230113
  Serious: No
  Sender: FDA-Public Use
  Company Number: US-SUPERNUS Pharmaceuticals, Inc.-SUP202204-000960

PATIENT
  Age: 54 Year
  Sex: Female

DRUGS (4)
  1. TROKENDI XR [Suspect]
     Active Substance: TOPIRAMATE
     Indication: Seizure
     Dosage: NOT PROVIDED
     Dates: start: 2021
  2. TROKENDI XR [Suspect]
     Active Substance: TOPIRAMATE
     Dates: start: 20220405
  3. TREMFYA [Concomitant]
     Active Substance: GUSELKUMAB
  4. CLOBETASOL PROPIONATE [Concomitant]
     Active Substance: CLOBETASOL PROPIONATE
     Dosage: NOT PROVIDED

REACTIONS (1)
  - Alopecia [Unknown]
